FAERS Safety Report 24547720 (Version 1)
Quarter: 2024Q4

REPORT INFORMATION
  Report Type: Spontaneous
  Country: US (occurrence: US)
  Receive Date: 20241025
  Receipt Date: 20241025
  Transmission Date: 20250114
  Serious: No
  Sender: ALCON
  Company Number: US-ALCON LABORATORIES-ALC2024US003308

PATIENT

DRUGS (1)
  1. CYCLOMYDRIL [Suspect]
     Active Substance: CYCLOPENTOLATE HYDROCHLORIDE\PHENYLEPHRINE HYDROCHLORIDE
     Indication: Mydriasis
     Dosage: UNKNOWN
     Route: 047

REACTIONS (2)
  - Heart rate increased [Unknown]
  - Off label use [Unknown]
